FAERS Safety Report 25819736 (Version 1)
Quarter: 2025Q3

REPORT INFORMATION
  Report Type: Spontaneous
  Country: US (occurrence: US)
  Receive Date: 20250918
  Receipt Date: 20250918
  Transmission Date: 20251021
  Serious: No
  Sender: JAZZ
  Company Number: US-JAZZ PHARMACEUTICALS-2025-US-020152

PATIENT
  Sex: Female

DRUGS (1)
  1. ZIIHERA [Suspect]
     Active Substance: ZANIDATAMAB-HRII
     Indication: HER2 positive biliary tract cancer
     Dosage: 20 MILLIGRAM/KILOGRAM, Q2W

REACTIONS (1)
  - Dizziness [Recovered/Resolved]
